FAERS Safety Report 4933271-3 (Version None)
Quarter: 2006Q1

REPORT INFORMATION
  Report Type: 
  Country: None (occurrence: None)
  Receive Date: 20060111
  Receipt Date: 20041221
  Transmission Date: 20060701
  Serious: Yes (Hospitalization)
  Sender: FDA-Public Use
  Company Number: A001-002-006333

PATIENT
  Age: 80 Year
  Sex: Female

DRUGS (8)
  1. ARICEPT [Suspect]
     Indication: DEMENTIA
     Dosage: 10 MG, 1 IN 1 D, ORAL
     Route: 048
     Dates: start: 20041122
  2. BEXTRA [Concomitant]
  3. VASOTEC [Concomitant]
  4. SEROQUEL [Concomitant]
  5. SINEMET [Concomitant]
  6. CALCIUM GLUCONATE [Concomitant]
  7. ASCORBIC ACID [Concomitant]
  8. ACETAMINOPHEN [Concomitant]

REACTIONS (1)
  - CONVULSION [None]
